FAERS Safety Report 9935109 (Version 1)
Quarter: 2014Q1

REPORT INFORMATION
  Report Type: Spontaneous
  Country: IL (occurrence: IL)
  Receive Date: 20140228
  Receipt Date: 20140228
  Transmission Date: 20141002
  Serious: Yes (Other)
  Sender: FDA-Public Use
  Company Number: IL-PFIZER INC-2014054985

PATIENT
  Sex: Female

DRUGS (3)
  1. LYRICA [Suspect]
     Indication: NEURALGIA
     Dosage: 150 MG, 2X/DAY
     Route: 048
  2. INSULIN [Concomitant]
  3. DEPREXAN [Suspect]
     Dosage: 50 MG, 2X/DAY

REACTIONS (1)
  - Abortion spontaneous [Unknown]
